FAERS Safety Report 7779985-1 (Version None)
Quarter: 2011Q3

REPORT INFORMATION
  Report Type: 
  Country: None (occurrence: None)
  Receive Date: 20110927
  Receipt Date: 20110920
  Transmission Date: 20111222
  Serious: Yes (Other)
  Sender: FDA-Public Use
  Company Number: PH-JNJFOC-20110907732

PATIENT
  Age: 89 Year
  Sex: Male

DRUGS (1)
  1. TRAMADOL HYDROCHLORIDE AND ACETAMINOPHEN [Suspect]
     Indication: ARTHRITIS
     Dosage: 1 TABLET TWICE DAILY
     Route: 048

REACTIONS (1)
  - MYOCLONUS [None]
